FAERS Safety Report 17806200 (Version 5)
Quarter: 2020Q2

REPORT INFORMATION
  Report Type: Spontaneous
  Country: US (occurrence: US)
  Receive Date: 20200520
  Receipt Date: 20200618
  Transmission Date: 20200714
  Serious: Yes (Hospitalization, Other)
  Sender: FDA-Public Use
  Company Number: US-UNITED THERAPEUTICS-UNT-2020-007355

PATIENT
  Age: 33 Year
  Sex: Female
  Weight: 66.21 kg

DRUGS (5)
  1. VELETRI [Suspect]
     Active Substance: EPOPROSTENOL
     Indication: PULMONARY ARTERIAL HYPERTENSION
     Dosage: UNK
     Route: 065
  2. REMODULIN [Suspect]
     Active Substance: TREPROSTINIL
     Dosage: 0.023 ?G/KG, CONTINUING
     Route: 041
  3. ELIQUIS [Concomitant]
     Active Substance: APIXABAN
     Indication: PRODUCT USED FOR UNKNOWN INDICATION
     Dosage: UNK
     Route: 065
     Dates: start: 20200507
  4. REMODULIN [Suspect]
     Active Substance: TREPROSTINIL
     Indication: PULMONARY ARTERIAL HYPERTENSION
     Dosage: UNK, CONTINUING
     Route: 041
     Dates: start: 20200507
  5. REMODULIN [Suspect]
     Active Substance: TREPROSTINIL
     Dosage: 0.022 ?G/KG, CONTINUING
     Route: 041

REACTIONS (16)
  - Fluid overload [Unknown]
  - Pulmonary hypertension [Unknown]
  - Vomiting [Unknown]
  - Pain in jaw [Unknown]
  - Dyspnoea exertional [Unknown]
  - Palpitations [Unknown]
  - Diarrhoea [Unknown]
  - Bone pain [Recovering/Resolving]
  - Decreased appetite [Unknown]
  - Nervousness [Unknown]
  - Cough [Unknown]
  - Dyspnoea [Unknown]
  - Nausea [Unknown]
  - Neuralgia [Unknown]
  - Headache [Unknown]
  - Pain in extremity [Unknown]

NARRATIVE: CASE EVENT DATE: 2020
